FAERS Safety Report 13085800 (Version 2)
Quarter: 2017Q1

REPORT INFORMATION
  Report Type: Spontaneous
  Country: GB (occurrence: GB)
  Receive Date: 20170104
  Receipt Date: 20170118
  Transmission Date: 20170428
  Serious: Yes (Other)
  Sender: FDA-Public Use
  Company Number: GB-MYLANLABS-2016M1059199

PATIENT

DRUGS (1)
  1. CLOZARIL [Suspect]
     Active Substance: CLOZAPINE
     Indication: SCHIZOPHRENIA
     Dosage: UNK
     Route: 048
     Dates: start: 20160204, end: 20161228

REACTIONS (4)
  - Asthenia [Unknown]
  - Dysphagia [Unknown]
  - Malaise [Unknown]
  - Feeding disorder [Unknown]

NARRATIVE: CASE EVENT DATE: 2016
